FAERS Safety Report 4984887-X (Version None)
Quarter: 2006Q1

REPORT INFORMATION
  Report Type: 
  Country: None (occurrence: None)
  Receive Date: 20060307
  Receipt Date: 20050929
  Transmission Date: 20060701
  Serious: Yes (Other)
  Sender: FDA-Public Use
  Company Number: 2005AD000104

PATIENT
  Age: 33 Year
  Sex: Female

DRUGS (1)
  1. KEFLEX [Suspect]
     Dates: start: 19900101

REACTIONS (1)
  - ANAPHYLACTIC REACTION [None]
